FAERS Safety Report 7804811-1 (Version None)
Quarter: 2011Q4

REPORT INFORMATION
  Report Type: 
  Country: None (occurrence: None)
  Receive Date: 20111010
  Receipt Date: 20110929
  Transmission Date: 20120403
  Serious: Yes (Hospitalization)
  Sender: FDA-Public Use
  Company Number: NL-MEDIMMUNE-MEDI-0013664

PATIENT
  Sex: Female
  Weight: 7 kg

DRUGS (3)
  1. FERRO [Concomitant]
  2. OXYGEN [Concomitant]
  3. SYNAGIS [Suspect]
     Indication: BRONCHOPULMONARY DYSPLASIA
     Route: 030
     Dates: start: 20110902, end: 20110902

REACTIONS (2)
  - WEIGHT DECREASED [None]
  - INFANTILE SPITTING UP [None]
